FAERS Safety Report 8803452 (Version 1)
Quarter: 2012Q4

REPORT INFORMATION
  Report Type: 
  Country: US (occurrence: US)
  Receive Date: 20120924
  Receipt Date: 20120924
  Transmission Date: 20130627
  Serious: No
  Sender: FDA-Public Use
  Company Number: US-009507513-1209USA007035

PATIENT

DRUGS (4)
  1. REBETOL [Suspect]
     Indication: HEPATITIS C
     Dosage: UNK
     Dates: start: 20040501, end: 20040801
  2. REBETOL [Suspect]
     Dosage: UNK
     Dates: start: 20040801, end: 20041101
  3. PEG-INTRON [Suspect]
     Indication: HEPATITIS C
     Dosage: UNK
     Dates: start: 20040501, end: 20040801
  4. INFERGEN [Concomitant]
     Indication: HEPATITIS C
     Dosage: Unknown hepatitis C injection
     Dates: start: 20040801, end: 20041101

REACTIONS (2)
  - Drug intolerance [Unknown]
  - Drug ineffective [Unknown]
